FAERS Safety Report 26096186 (Version 1)
Quarter: 2025Q4

REPORT INFORMATION
  Report Type: Spontaneous
  Country: US (occurrence: US)
  Receive Date: 20251127
  Receipt Date: 20251127
  Transmission Date: 20260117
  Serious: No
  Sender: COSETTE PHARMACEUTICALS INC
  Company Number: US-COSETTE-CP2025US001127

PATIENT
  Age: 69 Year
  Sex: Female
  Weight: 215 kg

DRUGS (2)
  1. MOMETASONE FUROATE [Suspect]
     Active Substance: MOMETASONE FUROATE
     Indication: Radiotherapy
     Route: 061
     Dates: start: 20251026
  2. MOMETASONE FUROATE [Suspect]
     Active Substance: MOMETASONE FUROATE
     Route: 061
     Dates: start: 20251029, end: 20251114

REACTIONS (3)
  - Erythema [Not Recovered/Not Resolved]
  - Product physical issue [Unknown]
  - Off label use [Unknown]

NARRATIVE: CASE EVENT DATE: 20251026
